FAERS Safety Report 15951463 (Version 1)
Quarter: 2019Q1

REPORT INFORMATION
  Report Type: Spontaneous
  Country: US (occurrence: US)
  Receive Date: 20190212
  Receipt Date: 20190212
  Transmission Date: 20190417
  Serious: Yes (Other)
  Sender: FDA-Public Use
  Company Number: US-BAYER-2019-029656

PATIENT
  Age: 68 Year
  Sex: Female

DRUGS (1)
  1. BETASERON [Suspect]
     Active Substance: INTERFERON BETA-1B
     Indication: MULTIPLE SCLEROSIS
     Dosage: 0.25 MG, QOD
     Dates: start: 1993

REACTIONS (5)
  - Sleep disorder [None]
  - Depression [None]
  - Fatigue [None]
  - Multiple sclerosis relapse [None]
  - Muscle spasms [None]

NARRATIVE: CASE EVENT DATE: 201809
